FAERS Safety Report 25966340 (Version 1)
Quarter: 2025Q4

REPORT INFORMATION
  Report Type: Report from Study
  Country: US (occurrence: US)
  Receive Date: 20251028
  Receipt Date: 20251028
  Transmission Date: 20260117
  Serious: No
  Sender: JOHNSON AND JOHNSON
  Company Number: US-JNJFOC-20251027390

PATIENT
  Age: 56 Year
  Sex: Female

DRUGS (1)
  1. TREMFYA [Suspect]
     Active Substance: GUSELKUMAB
     Indication: Psoriasis
     Dosage: FREQUENCY: 0 WEEKS; 2ND DOSE AT 4 WEEKS; OR EVERY 8 WEEKS
     Route: 058
     Dates: start: 20250605

REACTIONS (1)
  - Hepatic enzyme increased [Unknown]
